FAERS Safety Report 5902318-X (Version None)
Quarter: 2008Q3

REPORT INFORMATION
  Report Type: 
  Country: None (occurrence: None)
  Receive Date: 20080929
  Receipt Date: 20080908
  Transmission Date: 20090109
  Serious: No
  Sender: FDA-Public Use
  Company Number: US-B.I. PHARMACEUTICALS,INC./RIDGEFIELD-2008-BP-14220BP

PATIENT
  Age: 59 Year
  Sex: Female

DRUGS (5)
  1. SPIRIVA [Suspect]
     Indication: CHRONIC OBSTRUCTIVE PULMONARY DISEASE
     Dosage: 18MCG
     Route: 055
     Dates: start: 20080908
  2. OXYGEN [Concomitant]
  3. CLONIDINE [Concomitant]
     Indication: HYPERTENSION
  4. VERAPAMIL [Concomitant]
     Indication: HYPERTENSION
  5. ACIPHEX [Concomitant]

REACTIONS (1)
  - VISION BLURRED [None]
